FAERS Safety Report 21564114 (Version 2)
Quarter: 2022Q4

REPORT INFORMATION
  Report Type: Report from Study
  Country: US (occurrence: US)
  Receive Date: 20221108
  Receipt Date: 20221202
  Transmission Date: 20230112
  Serious: Yes (Hospitalization)
  Sender: FDA-Public Use
  Company Number: US-BAUSCH-BL-2022-019264

PATIENT
  Age: 46 Year
  Sex: Female

DRUGS (4)
  1. XIFAXAN [Suspect]
     Active Substance: RIFAXIMIN
     Indication: Hepatic encephalopathy
     Route: 048
  2. XIFAXAN [Suspect]
     Active Substance: RIFAXIMIN
     Route: 048
     Dates: end: 2022
  3. XIFAXAN [Suspect]
     Active Substance: RIFAXIMIN
     Route: 048
  4. XIFAXAN [Suspect]
     Active Substance: RIFAXIMIN
     Route: 048

REACTIONS (7)
  - Liver disorder [Unknown]
  - Adverse event [Not Recovered/Not Resolved]
  - Blood potassium decreased [Not Recovered/Not Resolved]
  - Rehabilitation therapy [Unknown]
  - Constipation [Unknown]
  - Inappropriate schedule of product administration [Unknown]
  - Product communication issue [Unknown]

NARRATIVE: CASE EVENT DATE: 20220101
